FAERS Safety Report 21104266 (Version 1)
Quarter: 2022Q3

REPORT INFORMATION
  Report Type: Spontaneous
  Country: US (occurrence: None)
  Receive Date: 20220719
  Receipt Date: 20220719
  Transmission Date: 20221027
  Serious: No
  Sender: FDA-Public Use
  Company Number: None

PATIENT
  Age: 33 Year
  Sex: Male

DRUGS (1)
  1. SOFOSBUVIR AND VELPATASVIR [Suspect]
     Active Substance: SOFOSBUVIR\VELPATASVIR
     Dosage: DOSE OR AMOUNT: 400-100MG?
     Route: 048
     Dates: start: 200112, end: 202202

REACTIONS (1)
  - Overdose [None]

NARRATIVE: CASE EVENT DATE: 20220719
